FAERS Safety Report 4863947-8 (Version None)
Quarter: 2005Q4

REPORT INFORMATION
  Report Type: 
  Country: None (occurrence: None)
  Receive Date: 20051219
  Receipt Date: 20051209
  Transmission Date: 20060501
  Serious: Yes (Other)
  Sender: FDA-Public Use
  Company Number: HQWYE977813DEC05

PATIENT
  Age: 49 Year
  Sex: Female

DRUGS (1)
  1. ADVIL [Suspect]
     Dosage: ^TWO ADVIL^, ORAL
     Route: 048

REACTIONS (4)
  - ANAPHYLACTIC REACTION [None]
  - HYPERTENSION [None]
  - OEDEMA PERIPHERAL [None]
  - SWELLING FACE [None]
